FAERS Safety Report 5261503-3 (Version None)
Quarter: 2007Q1

REPORT INFORMATION
  Report Type: 
  Country: None (occurrence: None)
  Receive Date: 20070308
  Receipt Date: 20070226
  Transmission Date: 20070707
  Serious: Yes (Other)
  Sender: FDA-Public Use
  Company Number: 2007RR-06044

PATIENT
  Age: 49 Year
  Sex: Female
  Weight: 73.5 kg

DRUGS (5)
  1. CYCLOPHOSPHAMIDE [Suspect]
     Dosage: 0.85 G/M^2
  2. PREDNISOLONE [Suspect]
     Dosage: 15 MG, QD, ORAL
     Route: 048
  3. PLAQUENIL [Suspect]
     Dosage: 200 MG, BID, ORAL
     Route: 048
  4. LISINOPRIL [Suspect]
     Dosage: 40 MG, QD, ORAL
     Route: 048
  5. NIFEDIPINE [Suspect]
     Dosage: 60 MG, QD, ORAL
     Route: 048

REACTIONS (9)
  - ARTHRALGIA [None]
  - BENIGN FAMILIAL HAEMATURIA [None]
  - BIOPSY KIDNEY ABNORMAL [None]
  - CELL DEATH [None]
  - CONDITION AGGRAVATED [None]
  - HAEMATURIA [None]
  - PROTEIN URINE PRESENT [None]
  - RASH [None]
  - RED BLOOD CELL ABNORMALITY [None]
